FAERS Safety Report 5818605-X (Version None)
Quarter: 2008Q3

REPORT INFORMATION
  Report Type: 
  Country: None (occurrence: None)
  Receive Date: 20080722
  Receipt Date: 20080711
  Transmission Date: 20090109
  Serious: Yes (Other)
  Sender: FDA-Public Use
  Company Number: US-ELI_LILLY_AND_COMPANY-US200807002379

PATIENT
  Sex: Female

DRUGS (26)
  1. BYETTA [Suspect]
     Indication: TYPE 2 DIABETES MELLITUS
     Dosage: 5 UG, 2/D
     Route: 058
     Dates: start: 20080212, end: 20080301
  2. BYETTA [Suspect]
     Dosage: 10 UG, 2/D
     Route: 058
     Dates: start: 20080301
  3. GLUCOPHAGE XR [Concomitant]
     Dosage: 1000 MG, EACH EVENING
     Route: 048
     Dates: end: 20080628
  4. GLUCOPHAGE XR [Concomitant]
     Dosage: 500 MG, 2/D
     Route: 048
     Dates: start: 20080628, end: 20080701
  5. GLUCOPHAGE XR [Concomitant]
     Dosage: 1000 MG, EACH EVENING
     Route: 048
     Dates: start: 20080701
  6. AVANDIA [Concomitant]
     Dosage: 4 MG, EACH EVENING
     Route: 048
  7. GLUCOTROL XL [Concomitant]
     Dosage: 5 MG, EACH MORNING
     Route: 048
  8. LANTUS [Concomitant]
     Dosage: 20 U, EACH MORNING
     Dates: end: 20080628
  9. LANTUS [Concomitant]
     Dosage: 15 U, EACH MORNING
     Dates: start: 20080628, end: 20080701
  10. LISINOPRIL AND HYDROCHLOROTHIAZIDE [Concomitant]
     Dosage: UNK, EACH MORNING
     Route: 048
  11. BUSPIRONE HCL [Concomitant]
     Indication: DEPRESSION
     Dosage: 7.5 MG, 3/D
     Route: 048
  12. BENICAR [Concomitant]
     Dosage: 20 MG, EACH MORNING
     Route: 048
     Dates: start: 20080708
  13. LASIX [Concomitant]
     Dosage: 20 MG, 2/D
     Route: 048
  14. POTASSIUM CHLORIDE [Concomitant]
     Dosage: 10 MEQ, 2/D
     Route: 048
  15. DOCUSATE SODIUM [Concomitant]
     Dosage: 100 MG, 2/D
     Route: 048
  16. ASPIRIN [Concomitant]
     Dosage: UNK, EACH EVENING
     Route: 048
  17. METHENAMINE [Concomitant]
     Indication: PROPHYLAXIS URINARY TRACT INFECTION
     Dosage: 1 G, 2/D
     Route: 048
  18. ANTIBIOTICS [Concomitant]
     Indication: URINARY TRACT INFECTION
     Route: 048
     Dates: start: 20080601, end: 20080601
  19. DETROL LA [Concomitant]
     Dosage: 4 MG, DAILY (1/D)
     Route: 048
  20. TIAZAC [Concomitant]
     Indication: BLOOD PRESSURE INCREASED
     Dosage: 360 MG, UNK
     Route: 048
  21. CALCIUM [Concomitant]
     Dosage: 1 D/F, EACH MORNING
     Route: 048
  22. CALCIUM [Concomitant]
     Dosage: 2 D/F, EACH EVENING
     Route: 048
  23. MULTI-VITAMIN [Concomitant]
     Dosage: 1 D/F, EACH MORNING
     Route: 048
  24. GLUCOSAMINE PLUS [Concomitant]
     Indication: ARTHROPATHY
     Dosage: 1 D/F, EACH EVENING
     Route: 048
  25. ACTONEL [Concomitant]
     Dosage: 35 MG, WEEKLY (1/W)
     Route: 048
  26. BETAGAN [Concomitant]
     Indication: GLAUCOMA
     Dosage: UNK, 2/D
     Route: 047

REACTIONS (14)
  - BACK PAIN [None]
  - BLOOD GLUCOSE DECREASED [None]
  - BLOOD GLUCOSE INCREASED [None]
  - BLOOD PRESSURE INCREASED [None]
  - COLD SWEAT [None]
  - DEPRESSED LEVEL OF CONSCIOUSNESS [None]
  - FEELING COLD [None]
  - FEELING JITTERY [None]
  - HEADACHE [None]
  - HEART RATE IRREGULAR [None]
  - MALAISE [None]
  - MYALGIA [None]
  - URINARY TRACT INFECTION [None]
  - VISION BLURRED [None]
